FAERS Safety Report 7630890-0 (Version None)
Quarter: 2011Q3

REPORT INFORMATION
  Report Type: 
  Country: None (occurrence: None)
  Receive Date: 20110724
  Receipt Date: 20110711
  Transmission Date: 20111222
  Serious: Yes (Other)
  Sender: FDA-Public Use
  Company Number: DE-MYLANLABS-2011S1014372

PATIENT
  Age: 29 Year
  Sex: Male

DRUGS (2)
  1. SERTRALINE HYDROCHLORIDE [Suspect]
     Indication: PRODUCT USED FOR UNKNOWN INDICATION
     Route: 048
     Dates: start: 20110413, end: 20110418
  2. SERTRALINE HYDROCHLORIDE [Suspect]
     Route: 048
     Dates: start: 20110419, end: 20110505

REACTIONS (1)
  - ERYTHEMA [None]
